FAERS Safety Report 6552651-6 (Version None)
Quarter: 2010Q1

REPORT INFORMATION
  Report Type: 
  Country: None (occurrence: None)
  Receive Date: 20100126
  Receipt Date: 20100125
  Transmission Date: 20100710
  Serious: Yes (Hospitalization)
  Sender: FDA-Public Use
  Company Number: A0841271A

PATIENT
  Age: 62 Year
  Sex: Female
  Weight: 74.5 kg

DRUGS (1)
  1. AVANDIA [Suspect]
     Indication: DIABETES MELLITUS
     Dosage: 2MG TWICE PER DAY
     Route: 048
     Dates: start: 20070303, end: 20080808

REACTIONS (4)
  - AMNESIA [None]
  - CEREBROVASCULAR ACCIDENT [None]
  - MOTOR DYSFUNCTION [None]
  - VISION BLURRED [None]
